FAERS Safety Report 12917327 (Version 1)
Quarter: 2016Q4

REPORT INFORMATION
  Report Type: Spontaneous
  Country: LT (occurrence: LT)
  Receive Date: 20161107
  Receipt Date: 20161107
  Transmission Date: 20170207
  Serious: Yes (Death)
  Sender: FDA-Public Use
  Company Number: LT-ABBVIE-16P-234-1771175-00

PATIENT
  Age: 47 Year
  Sex: Male

DRUGS (4)
  1. COMBIVIR [Concomitant]
     Active Substance: LAMIVUDINE\ZIDOVUDINE
     Indication: PRODUCT USED FOR UNKNOWN INDICATION
     Dates: start: 201507
  2. CEFUROXIME. [Concomitant]
     Active Substance: CEFUROXIME
     Indication: PRODUCT USED FOR UNKNOWN INDICATION
     Route: 048
     Dates: start: 201507, end: 201507
  3. KALETRA [Suspect]
     Active Substance: LOPINAVIR\RITONAVIR
     Indication: HEPATITIS C
     Route: 048
     Dates: start: 201507
  4. FLUCONAZOLE. [Concomitant]
     Active Substance: FLUCONAZOLE
     Indication: PRODUCT USED FOR UNKNOWN INDICATION
     Dates: start: 201507

REACTIONS (6)
  - Productive cough [Fatal]
  - Haemoptysis [Fatal]
  - Chapped lips [Fatal]
  - Weight decreased [Fatal]
  - Lip haemorrhage [Fatal]
  - Asthenia [Fatal]
